FAERS Safety Report 10045375 (Version 1)
Quarter: 2014Q1

REPORT INFORMATION
  Report Type: Spontaneous
  Country: US (occurrence: US)
  Receive Date: 20140328
  Receipt Date: 20140328
  Transmission Date: 20141002
  Serious: No
  Sender: FDA-Public Use
  Company Number: US-PFIZER INC-2014088198

PATIENT
  Age: 75 Year
  Sex: Female
  Weight: 82.99 kg

DRUGS (10)
  1. CELEBREX [Suspect]
     Indication: ARTHRITIS
     Dosage: 200 MG, 1X/DAY
     Route: 048
  2. DILANTIN [Suspect]
     Indication: CONVULSION
     Dosage: 200 MG (TAKING TWO CAPSULES 100MG TOGETHER), 2X/DAY
     Route: 048
  3. COREG [Concomitant]
     Dosage: 6.25 MG, 2X/DAY
  4. PLAVIX [Concomitant]
     Dosage: 75 MG, 1X/DAY
  5. HYZAAR [Concomitant]
     Dosage: 100 MG, 1X/DAY
  6. ZETIA [Concomitant]
     Dosage: 10 MG, 1X/DAY
  7. FUROSEMIDE [Concomitant]
     Indication: DIURETIC THERAPY
     Dosage: 20 MG, 1X/DAY
  8. AMLODIPINE [Concomitant]
     Dosage: UNK
  9. ATORVASTATIN [Concomitant]
     Dosage: UNK
  10. HYDROCODONE [Concomitant]
     Indication: PAIN
     Dosage: UNK

REACTIONS (1)
  - Hypertonic bladder [Not Recovered/Not Resolved]
